FAERS Safety Report 4457169-2 (Version None)
Quarter: 2004Q3

REPORT INFORMATION
  Report Type: 
  Country: None (occurrence: None)
  Receive Date: 20040923
  Receipt Date: 20040322
  Transmission Date: 20050211
  Serious: Yes (Other)
  Sender: FDA-Public Use
  Company Number: PHNU2004DE01299

PATIENT
  Age: 83 Year
  Sex: Female

DRUGS (9)
  1. TEGRETOL [Suspect]
     Indication: MYOCLONIC EPILEPSY
     Dosage: 100 MG, TID
     Route: 048
     Dates: start: 20030601, end: 20040101
  2. TEGRETOL [Suspect]
     Dosage: 100 MG, BID
     Route: 048
     Dates: start: 20040101
  3. CONCOR [Concomitant]
  4. DIGIMERCK [Concomitant]
  5. AMARYL [Concomitant]
  6. ACETYLSALICYLIC ACID [Concomitant]
  7. NEOTRI [Concomitant]
  8. ALLVORAN [Suspect]
     Indication: WOUND
     Dosage: UNK, UNK
  9. LEXOTANIL [Concomitant]

REACTIONS (9)
  - CONDITION AGGRAVATED [None]
  - CONFUSIONAL STATE [None]
  - DISORIENTATION [None]
  - ENURESIS [None]
  - GAIT DISTURBANCE [None]
  - MUSCLE TWITCHING [None]
  - MYOCLONUS [None]
  - STRESS SYMPTOMS [None]
  - WOUND [None]
